FAERS Safety Report 6073965-2 (Version None)
Quarter: 2009Q1

REPORT INFORMATION
  Report Type: 
  Country: None (occurrence: None)
  Receive Date: 20090211
  Receipt Date: 20090206
  Transmission Date: 20090719
  Serious: Yes (Life-Threatening, Disabling, Other)
  Sender: FDA-Public Use
  Company Number: PHHY2009GB01537

PATIENT
  Sex: Male

DRUGS (5)
  1. CLOZARIL [Suspect]
     Indication: SCHIZOPHRENIA
     Dosage: 400 MG, QHS
     Route: 048
     Dates: start: 20040101
  2. CLOZARIL [Suspect]
     Dosage: 200 MG
  3. LITHIUM CARBONATE [Suspect]
     Indication: SCHIZOPHRENIA
     Dosage: 1.2 G, QHS
     Route: 048
  4. LITHIUM CARBONATE [Suspect]
     Indication: BIPOLAR DISORDER
  5. DICLOFENAC [Concomitant]
     Indication: ARTHRALGIA
     Dosage: 25 G, TID
     Route: 048

REACTIONS (6)
  - ANTIPSYCHOTIC DRUG LEVEL INCREASED [None]
  - CARDIAC ARREST [None]
  - OBESITY [None]
  - RESPIRATORY TRACT INFECTION [None]
  - SKIN CHAPPED [None]
  - THERAPEUTIC AGENT TOXICITY [None]
